FAERS Safety Report 7429025-9 (Version None)
Quarter: 2011Q2

REPORT INFORMATION
  Report Type: 
  Country: None (occurrence: None)
  Receive Date: 20110421
  Receipt Date: 20110415
  Transmission Date: 20111010
  Serious: Yes (Other)
  Sender: FDA-Public Use
  Company Number: CA-ROCHE-755086

PATIENT
  Sex: Female
  Weight: 78 kg

DRUGS (11)
  1. EZETIMIBE [Concomitant]
  2. EZETIMIBE [Concomitant]
  3. METHOTREXATE [Concomitant]
     Dates: end: 20101201
  4. PAROXETINE HCL [Concomitant]
     Dosage: DRUG NAME ^MILAN PAROXITINE^
  5. NOVORAPID [Concomitant]
  6. EURO-FOLIC [Concomitant]
     Dosage: DRUG NAME REPORTED AS ^URO FOLIC^
  7. SIMVASTATIN [Concomitant]
  8. TOCILIZUMAB [Suspect]
     Indication: RHEUMATOID ARTHRITIS
     Dosage: FORM: INFUSION
     Route: 042
     Dates: start: 20101217
  9. PLAQUENIL [Concomitant]
  10. METHOTREXATE [Concomitant]
  11. ENBREL [Concomitant]

REACTIONS (8)
  - WHITE BLOOD CELL COUNT DECREASED [None]
  - SINUSITIS [None]
  - RHEUMATOID ARTHRITIS [None]
  - FATIGUE [None]
  - DIARRHOEA [None]
  - ABDOMINAL DISCOMFORT [None]
  - TUBERCULOSIS [None]
  - OEDEMA [None]
